FAERS Safety Report 25503514 (Version 1)
Quarter: 2025Q3

REPORT INFORMATION
  Report Type: Spontaneous
  Country: CR (occurrence: CR)
  Receive Date: 20250702
  Receipt Date: 20250702
  Transmission Date: 20251020
  Serious: Yes (Other)
  Sender: ROCHE
  Company Number: CR-ROCHE-10000324285

PATIENT
  Sex: Male

DRUGS (1)
  1. MABTHERA [Suspect]
     Active Substance: RITUXIMAB
     Indication: Cutaneous lymphoma
     Route: 065

REACTIONS (3)
  - Corneal thinning [Unknown]
  - Off label use [Unknown]
  - Retinal artery occlusion [Unknown]
